FAERS Safety Report 5927653-0 (Version None)
Quarter: 2008Q4

REPORT INFORMATION
  Report Type: 
  Country: None (occurrence: None)
  Receive Date: 20081021
  Receipt Date: 20080925
  Transmission Date: 20090506
  Serious: Yes (Other)
  Sender: FDA-Public Use
  Company Number: HYPQ-PR-0810L-0001

PATIENT
  Age: 36 Year
  Sex: Female

DRUGS (4)
  1. HYPAQUE [Suspect]
     Indication: HERNIA
     Dosage: 150 ML, SINGLE DOSE, I.V.
     Route: 042
  2. BARIUM SULFATE [Concomitant]
  3. TRIAMCINOLONE [Concomitant]
  4. SALMETEROL [Concomitant]

REACTIONS (7)
  - ANXIETY [None]
  - HYPERVENTILATION [None]
  - MUSCULOSKELETAL STIFFNESS [None]
  - POSTURE ABNORMAL [None]
  - SPEECH DISORDER [None]
  - TACHYCARDIA [None]
  - TARDIVE DYSKINESIA [None]
